FAERS Safety Report 6634746-1 (Version None)
Quarter: 2010Q1

REPORT INFORMATION
  Report Type: 
  Country: None (occurrence: None)
  Receive Date: 20100312
  Receipt Date: 20100312
  Transmission Date: 20100710
  Serious: No
  Sender: FDA-Public Use
  Company Number: None

PATIENT
  Age: 51 Year
  Sex: Female
  Weight: 57.9 kg

DRUGS (1)
  1. CHANTIX [Suspect]
     Indication: EX-TOBACCO USER
     Dosage: 0.5 MG EVERY DAY PO
     Route: 048
     Dates: start: 20100115, end: 20100205

REACTIONS (3)
  - AGITATION [None]
  - HALLUCINATION [None]
  - NIGHTMARE [None]
